FAERS Safety Report 7383529-6 (Version None)
Quarter: 2011Q1

REPORT INFORMATION
  Report Type: 
  Country: None (occurrence: None)
  Receive Date: 20110328
  Receipt Date: 20110328
  Transmission Date: 20110831
  Serious: Yes (Hospitalization)
  Sender: FDA-Public Use
  Company Number: None

PATIENT
  Age: 34 Year
  Sex: Female
  Weight: 138.3471 kg

DRUGS (2)
  1. PREDNISONE 10MG WATSON LABS [Suspect]
     Indication: ASTHMA
     Dosage: 60 2 PO , 50 2 PO
     Route: 048
     Dates: start: 20110321, end: 20110326
  2. PREDNISONE 10MG WATSON LABS [Suspect]
     Indication: PNEUMONIA
     Dosage: 60 2 PO , 50 2 PO
     Route: 048
     Dates: start: 20110321, end: 20110326

REACTIONS (6)
  - PAIN [None]
  - CRYING [None]
  - ARTHRALGIA [None]
  - NECK PAIN [None]
  - BACK PAIN [None]
  - PAIN IN EXTREMITY [None]
